FAERS Safety Report 11981374 (Version 2)
Quarter: 2016Q1

REPORT INFORMATION
  Report Type: Report from Study
  Country: US (occurrence: US)
  Receive Date: 20160130
  Receipt Date: 20160331
  Transmission Date: 20160526
  Serious: Yes (Hospitalization)
  Sender: FDA-Public Use
  Company Number: PHEH2016US002145

PATIENT
  Age: 54 Year
  Sex: Female
  Weight: 90.3 kg

DRUGS (12)
  1. MECLIZINE [Concomitant]
     Active Substance: MECLIZINE HYDROCHLORIDE
     Indication: DIZZINESS
     Dosage: 25 MG, PRN
     Route: 048
     Dates: start: 20140513
  2. ONDANSETRON [Concomitant]
     Active Substance: ONDANSETRON
     Indication: NAUSEA
     Dosage: 8 MG, BID (PRN)
     Route: 048
     Dates: start: 20150921
  3. OXYCODONE [Concomitant]
     Active Substance: OXYCODONE
     Indication: BONE CANCER
  4. AFINITOR [Suspect]
     Active Substance: EVEROLIMUS
     Indication: BREAST CANCER FEMALE
     Dosage: 10 MG, QD
     Route: 048
     Dates: start: 20151103
  5. MS CONTIN [Concomitant]
     Active Substance: MORPHINE SULFATE
     Indication: SPINAL FRACTURE
  6. PANTOPRAZOLE [Concomitant]
     Active Substance: PANTOPRAZOLE SODIUM
     Indication: GASTROOESOPHAGEAL REFLUX DISEASE
     Dosage: 40 MG, QD
     Route: 048
     Dates: start: 20130625
  7. AFINITOR [Suspect]
     Active Substance: EVEROLIMUS
     Dosage: 5 MG, QD
     Route: 048
     Dates: start: 20160106
  8. AFINITOR [Suspect]
     Active Substance: EVEROLIMUS
     Dosage: 7.5 MG, QD
     Route: 048
     Dates: start: 20160302
  9. EXEMESTANE. [Concomitant]
     Active Substance: EXEMESTANE
     Indication: BREAST CANCER FEMALE
     Dosage: 25 MG, QD
     Route: 048
     Dates: start: 20151103
  10. MS CONTIN [Concomitant]
     Active Substance: MORPHINE SULFATE
     Indication: BONE CANCER
     Dosage: 30 MG, BID
     Route: 048
     Dates: start: 20130409
  11. GABAPENTINE [Concomitant]
     Active Substance: GABAPENTIN
     Indication: MONONEURITIS
     Dosage: 1000 MG, TID
     Route: 048
     Dates: start: 20130829, end: 20160223
  12. OXYCODONE [Concomitant]
     Active Substance: OXYCODONE
     Indication: SPINAL FRACTURE
     Dosage: 5 MG, PRN (Q4M)
     Route: 048
     Dates: start: 20140114

REACTIONS (6)
  - Nausea [Recovering/Resolving]
  - Dehydration [Unknown]
  - Diarrhoea [Recovering/Resolving]
  - Pleural effusion [Unknown]
  - Gastritis [Unknown]
  - Vomiting [Recovering/Resolving]

NARRATIVE: CASE EVENT DATE: 20151118
